FAERS Safety Report 9128976 (Version 3)
Quarter: 2013Q2

REPORT INFORMATION
  Report Type: Spontaneous
  Country: US (occurrence: US)
  Receive Date: 20130125
  Receipt Date: 20130510
  Transmission Date: 20140414
  Serious: Yes (Life-Threatening, Hospitalization, Other)
  Sender: FDA-Public Use
  Company Number: US-ELI_LILLY_AND_COMPANY-US201301008311

PATIENT
  Age: 68 Year
  Sex: Male
  Weight: 68.93 kg

DRUGS (4)
  1. ALIMTA [Suspect]
     Indication: LUNG NEOPLASM MALIGNANT
     Dosage: 500 MG/M2, UNKNOWN
     Route: 042
  2. ALIMTA [Suspect]
     Dosage: 880 MG, OTHER
     Route: 042
     Dates: start: 20120718, end: 20130102
  3. VITAMIN B12 [Concomitant]
     Dosage: UNK
  4. FOLIC ACID [Concomitant]
     Dosage: UNK

REACTIONS (3)
  - Myocardial infarction [Recovered/Resolved with Sequelae]
  - Right ventricular failure [Unknown]
  - Oedema peripheral [Unknown]
